FAERS Safety Report 9220914 (Version 1)
Quarter: 2013Q2

REPORT INFORMATION
  Report Type: Spontaneous
  Country: BR (occurrence: BR)
  Receive Date: 20130409
  Receipt Date: 20130409
  Transmission Date: 20140414
  Serious: Yes (Hospitalization, Other)
  Sender: FDA-Public Use
  Company Number: PHHY2013BR033293

PATIENT
  Sex: Female
  Weight: 52 kg

DRUGS (5)
  1. TEGRETOL [Suspect]
     Indication: TRIGEMINAL NEURALGIA
     Dosage: 1 DF, DAILY
     Route: 048
     Dates: start: 201203
  2. LOSARTAN [Concomitant]
     Indication: HYPERTENSION
     Dosage: 2 DF, DAILY
     Route: 048
  3. HYDROCHOROTHIAZIDE [Concomitant]
     Indication: HYPERTENSION
     Dosage: 1 DF, DAILY
     Route: 048
  4. OMEPRAZOLE [Concomitant]
     Dosage: 1 DF, DAILY
     Route: 048
  5. AMYTRIL [Concomitant]
     Indication: ANXIETY
     Dosage: 1 DF, DAILY
     Route: 048

REACTIONS (2)
  - Arthropathy [Not Recovered/Not Resolved]
  - Trigeminal neuralgia [Recovered/Resolved]
